FAERS Safety Report 21816586 (Version 1)
Quarter: 2023Q1

REPORT INFORMATION
  Report Type: Spontaneous
  Country: US (occurrence: None)
  Receive Date: 20230104
  Receipt Date: 20230104
  Transmission Date: 20230418
  Serious: Yes (Hospitalization)
  Sender: FDA-Public Use
  Company Number: None

PATIENT
  Sex: Male
  Weight: 106.3 kg

DRUGS (4)
  1. FLUOROURACIL [Suspect]
     Active Substance: FLUOROURACIL
  2. CAMPTOSAR [Concomitant]
     Active Substance: IRINOTECAN HYDROCHLORIDE
  3. LEUCOVORIN CALCIUM [Concomitant]
     Active Substance: LEUCOVORIN CALCIUM
  4. ELOXATIN [Concomitant]
     Active Substance: OXALIPLATIN

REACTIONS (14)
  - Nausea [None]
  - Vomiting [None]
  - Hypophagia [None]
  - Diarrhoea [None]
  - Abdominal distension [None]
  - Gastrointestinal wall thickening [None]
  - Pancreatic mass [None]
  - Device dislocation [None]
  - Procedural complication [None]
  - Liver function test increased [None]
  - Intestinal stenosis [None]
  - Intra-abdominal fluid collection [None]
  - Post procedural bile leak [None]
  - Abdominal pain [None]

NARRATIVE: CASE EVENT DATE: 20221214
